FAERS Safety Report 6490557-1 (Version None)
Quarter: 2009Q4

REPORT INFORMATION
  Report Type: 
  Country: None (occurrence: None)
  Receive Date: 20091210
  Receipt Date: 20091210
  Transmission Date: 20100525
  Serious: No
  Sender: FDA-Public Use
  Company Number: None

PATIENT

DRUGS (3)
  1. AMOXICILLIN AND CLAVULANATE POTASSIUM [Suspect]
     Indication: HELICOBACTER INFECTION
     Dosage: 30MG/KG/DAY
  2. OMEPRAZOLE [Concomitant]
  3. METRONIDAZOLE [Concomitant]

REACTIONS (10)
  - ABDOMINAL PAIN [None]
  - CONSTIPATION [None]
  - DIARRHOEA [None]
  - DYSGEUSIA [None]
  - DYSURIA [None]
  - FAECES DISCOLOURED [None]
  - HEADACHE [None]
  - MYALGIA [None]
  - NAUSEA [None]
  - RASH [None]
